FAERS Safety Report 19718291 (Version 1)
Quarter: 2021Q3

REPORT INFORMATION
  Report Type: Spontaneous
  Country: US (occurrence: US)
  Receive Date: 20210818
  Receipt Date: 20210818
  Transmission Date: 20211014
  Serious: Yes (Other)
  Sender: FDA-Public Use
  Company Number: US-PFIZER INC-202101015575

PATIENT
  Age: 40 Year
  Sex: Female
  Weight: 67.13 kg

DRUGS (1)
  1. CHANTIX [Suspect]
     Active Substance: VARENICLINE TARTRATE
     Indication: SMOKING CESSATION THERAPY
     Dosage: UNK, (STARTING WITH 0.5MG, GOING TO 1 MG THE REST OF THE WAY)
     Route: 048
     Dates: start: 202008, end: 202105

REACTIONS (7)
  - Syncope [Not Recovered/Not Resolved]
  - Cough [Unknown]
  - Haematemesis [Not Recovered/Not Resolved]
  - Nasopharyngitis [Unknown]
  - Fatigue [Not Recovered/Not Resolved]
  - Haemoptysis [Not Recovered/Not Resolved]
  - Dizziness [Not Recovered/Not Resolved]
